FAERS Safety Report 11584843 (Version 1)
Quarter: 2015Q4

REPORT INFORMATION
  Report Type: Spontaneous
  Country: US (occurrence: US)
  Receive Date: 20151001
  Receipt Date: 20151001
  Transmission Date: 20160304
  Serious: No
  Sender: FDA-Public Use
  Company Number: US-GREER LABORATORIES, INC.-1042467

PATIENT
  Age: 29 Year
  Sex: Female

DRUGS (3)
  1. GRASS POLLEN [Suspect]
     Active Substance: AGROSTIS GIGANTEA POLLEN\ARSENIC TRIIODIDE\AVENA SATIVA FLOWERING TOP\BROMUS SECALINUS POLLEN\CYNODON DACTYLON\DACTYLIS GLOMERATA POLLEN\EPINEPHRINE\EUPHRASIA STRICTA\FESTUCA PRATENSIS POLLEN\HISTAMINE DIHYDROCHLORIDE\LOLIUM PERENNE POLLEN\ONION\PHLEUM PRATENSE POLLEN\POA PRATENSIS POLLEN\SANGUINARI
     Indication: RHINITIS ALLERGIC
     Route: 060
     Dates: start: 20150404
  2. POLLENS - WEEDS AND GARDEN PLANTS, RAGWEED, MIXED AMBROSIA [Suspect]
     Active Substance: AMBROSIA ARTEMISIIFOLIA POLLEN\AMBROSIA TRIFIDA POLLEN
     Route: 060
     Dates: start: 20150404
  3. STERILE DILUENT FOR ALLERGENIC EXTRACT (GLYCERIN) [Suspect]
     Active Substance: GLYCERIN
     Route: 060
     Dates: start: 20150404

REACTIONS (1)
  - Dysgeusia [Recovered/Resolved]

NARRATIVE: CASE EVENT DATE: 20150827
